FAERS Safety Report 9350609 (Version 1)
Quarter: 2013Q2

REPORT INFORMATION
  Report Type: Spontaneous
  Country: BR (occurrence: BR)
  Receive Date: 20130617
  Receipt Date: 20130617
  Transmission Date: 20140414
  Serious: Yes (Other)
  Sender: FDA-Public Use
  Company Number: BR-JNJFOC-20130603135

PATIENT
  Sex: Female

DRUGS (1)
  1. EVRA [Suspect]
     Indication: CONTRACEPTION
     Route: 062
     Dates: start: 2012

REACTIONS (9)
  - Vaginal haemorrhage [Unknown]
  - Local swelling [Unknown]
  - Swelling face [Unknown]
  - Headache [Unknown]
  - Chromaturia [Unknown]
  - Muscle spasms [Unknown]
  - Application site pruritus [Unknown]
  - Drug ineffective [Unknown]
  - Application site reaction [Unknown]
